FAERS Safety Report 8172488-4 (Version None)
Quarter: 2012Q1

REPORT INFORMATION
  Report Type: 
  Country: None (occurrence: None)
  Receive Date: 20120229
  Receipt Date: 20120217
  Transmission Date: 20120608
  Serious: Yes (Hospitalization, Other)
  Sender: FDA-Public Use
  Company Number: US-BAYER-201033467NA

PATIENT
  Age: 24 Year
  Sex: Female
  Weight: 54.422 kg

DRUGS (11)
  1. HYDROCODONE BITARTRATE AND ACETAMINOPHEN [Concomitant]
     Indication: PAIN
     Dosage: 5MG/500MG +#8211; TAKE 1-2 EVERY 4-6 HOURS AS NEEDED
     Route: 048
  2. ENGERIX-B [Concomitant]
     Dosage: 20 MCG
     Route: 030
     Dates: start: 20050308
  3. CARISOPRODOL [Concomitant]
     Dosage: 350 MG, Q4HR
     Route: 048
  4. CELEBREX [Concomitant]
  5. NSAID'S [Concomitant]
  6. LUMBAR STEROIDS INJECTION [Concomitant]
     Indication: BACK PAIN
  7. TETRACYCLINE [Concomitant]
     Indication: CELLULITIS
  8. SOMA [Concomitant]
  9. TRAZODONE HCL [Concomitant]
     Dosage: 15 ML, UNK
     Route: 048
  10. YAZ [Suspect]
     Dosage: UNK
     Dates: start: 20050201, end: 20050401
  11. ANTIBIOTICS [Concomitant]

REACTIONS (9)
  - DEPRESSION [None]
  - EMOTIONAL DISTRESS [None]
  - PAIN IN EXTREMITY [None]
  - STRESS [None]
  - ANXIETY [None]
  - ABORTION SPONTANEOUS [None]
  - OEDEMA PERIPHERAL [None]
  - BACK PAIN [None]
  - DEEP VEIN THROMBOSIS [None]
